FAERS Safety Report 9096998 (Version 1)
Quarter: 2013Q1

REPORT INFORMATION
  Report Type: Spontaneous
  Country: US (occurrence: None)
  Receive Date: 20130125
  Receipt Date: 20130125
  Transmission Date: 20140127
  Serious: Yes (Hospitalization)
  Sender: FDA-Public Use
  Company Number: FK201300088

PATIENT
  Age: 90 Year
  Sex: Female

DRUGS (7)
  1. PROPOFOL [Suspect]
     Indication: PRODUCT USED FOR UNKNOWN INDICATION
     Dosage: 10 MICROGRAM/KILOGRAM/ PER MINUTE, INTRAVENOUS (NOT OTHERWISE SPECIFIED)?12/05/2012  -  12/05/2012
     Route: 042
     Dates: start: 20121205, end: 20121205
  2. ALBUTEROL  +  IPRATROPRIUM [Concomitant]
  3. PANTOPRAZOLE (PANTOPRAZOLE) [Concomitant]
  4. NOREPINEPHRINE (NOREPINEPHRINE) [Concomitant]
  5. FENTANYL (FENTANYL) [Concomitant]
  6. CISATRACURIUM (CISATRACURIUM) [Concomitant]
  7. INSULIN (INSULIN) [Concomitant]

REACTIONS (2)
  - Cardio-respiratory arrest [None]
  - Hypoxic-ischaemic encephalopathy [None]
